FAERS Safety Report 18164516 (Version 1)
Quarter: 2020Q3

REPORT INFORMATION
  Report Type: Spontaneous
  Country: CN (occurrence: CN)
  Receive Date: 20200818
  Receipt Date: 20200818
  Transmission Date: 20201103
  Serious: Yes (Other)
  Sender: FDA-Public Use
  Company Number: CN-FRESENIUS KABI-FK202008430

PATIENT
  Age: 49 Year
  Sex: Female

DRUGS (7)
  1. METHYLPREDNISOLONE (MANUFACTURER UNKNOWN) [Suspect]
     Active Substance: METHYLPREDNISOLONE
     Indication: CYTOKINE STORM
     Route: 065
     Dates: start: 202001
  2. MOXIFLOXACIN. [Concomitant]
     Active Substance: MOXIFLOXACIN
     Indication: ANTIBIOTIC THERAPY
     Route: 065
     Dates: start: 20200122
  3. AZITHROMYCIN ANHYDROUS. [Concomitant]
     Active Substance: AZITHROMYCIN ANHYDROUS
     Indication: ANTIBIOTIC THERAPY
     Route: 065
     Dates: start: 202001
  4. THIAMAZOLE [Concomitant]
     Active Substance: METHIMAZOLE
     Indication: HYPERTHYROIDISM
     Route: 065
  5. DICLOFENAC [Concomitant]
     Active Substance: DICLOFENAC
     Indication: PYREXIA
     Route: 065
     Dates: start: 20200122
  6. OSELTAMIVIR [Concomitant]
     Active Substance: OSELTAMIVIR
     Indication: ANTIVIRAL TREATMENT
     Route: 065
     Dates: start: 20200122
  7. INTERFERON ALFA?2B [Concomitant]
     Active Substance: INTERFERON ALFA-2B
     Indication: ANTIVIRAL TREATMENT
     Dosage: 5 X 10^6 IU
     Route: 065
     Dates: start: 202001

REACTIONS (4)
  - Candida infection [Recovered/Resolved]
  - Intentional product use issue [Recovered/Resolved]
  - COVID-19 [Recovered/Resolved]
  - Disease progression [Recovered/Resolved]
